FAERS Safety Report 9693167 (Version 3)
Quarter: 2014Q2

REPORT INFORMATION
  Report Type: Spontaneous
  Country: AU (occurrence: AU)
  Receive Date: 20131118
  Receipt Date: 20140417
  Transmission Date: 20141212
  Serious: Yes (Hospitalization)
  Sender: FDA-Public Use
  Company Number: AU-NOVOPROD-392536

PATIENT
  Sex: Female

DRUGS (4)
  1. MIXTARD 30/70 INNOLET [Suspect]
     Indication: TYPE 2 DIABETES MELLITUS
     Dosage: 30U NIGHTLY AND 16U MORNING
     Route: 058
  2. MIXTARD 30/70 INNOLET [Suspect]
     Dosage: 34U NIGHTLY AND 16U MORNING
     Route: 058
  3. NOVOMIX 30 FLEXPEN [Suspect]
     Indication: TYPE 2 DIABETES MELLITUS
     Dosage: 20 MORNING/ 10 NIGHT
     Route: 065
     Dates: start: 20130920, end: 20130926
  4. HUMALOG [Suspect]
     Indication: TYPE 2 DIABETES MELLITUS
     Dosage: 36 MORNING/16 NIGHT
     Route: 065

REACTIONS (8)
  - Swollen tongue [Not Recovered/Not Resolved]
  - Pharyngeal oedema [Not Recovered/Not Resolved]
  - Abdominal pain upper [Not Recovered/Not Resolved]
  - Palpitations [Not Recovered/Not Resolved]
  - Dysgeusia [Not Recovered/Not Resolved]
  - Agitation [Not Recovered/Not Resolved]
  - Nausea [Not Recovered/Not Resolved]
  - Injection site pain [Not Recovered/Not Resolved]
